FAERS Safety Report 6465074-5 (Version None)
Quarter: 2009Q4

REPORT INFORMATION
  Report Type: 
  Country: None (occurrence: None)
  Receive Date: 20091201
  Receipt Date: 20091118
  Transmission Date: 20100525
  Serious: Yes (Other)
  Sender: FDA-Public Use
  Company Number: JP-PFIZER INC-2009300579

PATIENT
  Age: 9 Year
  Sex: Male

DRUGS (4)
  1. HYDROCORTISONE ACETATE AND HYDROCORTISONE AND HYDROCORTISONE CIPIONATE [Suspect]
  2. PREDNISOLONE AND PREDNISOLONE STEAGLATE [Suspect]
     Dosage: 60 MG/M2
  3. METHOTREXATE SODIUM [Concomitant]
  4. CYTARABINE [Concomitant]

REACTIONS (1)
  - DISSEMINATED INTRAVASCULAR COAGULATION [None]
